FAERS Safety Report 5830371-0 (Version None)
Quarter: 2008Q3

REPORT INFORMATION
  Report Type: 
  Country: None (occurrence: None)
  Receive Date: 20080801
  Receipt Date: 20080723
  Transmission Date: 20090109
  Serious: Yes (Hospitalization)
  Sender: FDA-Public Use
  Company Number: FR-ROCHE-577467

PATIENT
  Sex: Female

DRUGS (5)
  1. ROCEPHIN [Suspect]
     Dosage: FORM: INJECTABLE SOLUTION
     Route: 042
     Dates: start: 20080519, end: 20080520
  2. ROCEPHIN [Suspect]
     Route: 042
     Dates: start: 20080517, end: 20080517
  3. ROCEPHIN [Suspect]
     Route: 042
     Dates: start: 20080518, end: 20080518
  4. ACETAMINOPHEN [Suspect]
     Indication: DRUG USE FOR UNKNOWN INDICATION
     Dosage: FORM: INJECTABLE SOLUTION
     Route: 042
     Dates: start: 20080516, end: 20080521
  5. GENTAMYCIN SULFATE [Suspect]
     Dosage: FORM: INJECTABLE SOLUTION
     Route: 042
     Dates: start: 20080517, end: 20080521

REACTIONS (2)
  - RASH PAPULAR [None]
  - RASH PUSTULAR [None]
